FAERS Safety Report 9723702 (Version 1)
Quarter: 2013Q4

REPORT INFORMATION
  Report Type: Spontaneous
  Country: DE (occurrence: DE)
  Receive Date: 20131202
  Receipt Date: 20131202
  Transmission Date: 20140711
  Serious: Yes (Hospitalization)
  Sender: FDA-Public Use
  Company Number: DE-GLAXOSMITHKLINE-D0081955A

PATIENT
  Age: 68 Year
  Sex: Male

DRUGS (6)
  1. PAROXETIN [Suspect]
     Dosage: 20MG PER DAY
     Route: 048
     Dates: end: 20130614
  2. PROMETHAZIN [Suspect]
     Dosage: 100MG PER DAY
     Route: 048
     Dates: end: 20130606
  3. TRAMADOL [Suspect]
     Dosage: 200MG PER DAY
     Route: 048
     Dates: end: 20130625
  4. ASS [Concomitant]
     Dosage: 100MG PER DAY
     Route: 048
  5. GABAPENTIN [Concomitant]
     Dosage: 1800MG PER DAY
     Route: 048
  6. INDOMETACIN [Concomitant]
     Dosage: 150MG PER DAY
     Route: 048
     Dates: end: 20130626

REACTIONS (6)
  - Serotonin syndrome [Recovered/Resolved]
  - Restlessness [Recovered/Resolved]
  - Disorientation [Recovered/Resolved]
  - Tremor [Recovered/Resolved]
  - Tachycardia [Recovered/Resolved]
  - Hyperhidrosis [Recovered/Resolved]
